FAERS Safety Report 16040778 (Version 1)
Quarter: 2019Q1

REPORT INFORMATION
  Report Type: Report from Study
  Country: CA (occurrence: CA)
  Receive Date: 20190306
  Receipt Date: 20190306
  Transmission Date: 20190418
  Serious: Yes (Death, Hospitalization)
  Sender: FDA-Public Use
  Company Number: CA-TAIHO ONCOLOGY  INC-EU-2019-00453

PATIENT
  Age: 56 Year
  Sex: Female
  Weight: 53 kg

DRUGS (2)
  1. LONSURF [Suspect]
     Active Substance: TIPIRACIL HYDROCHLORIDE\TRIFLURIDINE
     Dosage: CYCLE 1-3, DOSE DELAY FROM 17/DEC/2018 TO 04/JAN/2019.
     Route: 048
     Dates: start: 20181022, end: 20190131
  2. LONSURF [Suspect]
     Active Substance: TIPIRACIL HYDROCHLORIDE\TRIFLURIDINE
     Indication: COLORECTAL CANCER METASTATIC
     Dosage: CURRENT CYCLE 4 STARTED ON 01/FEB/2019.
     Route: 048
     Dates: start: 20190201

REACTIONS (3)
  - Death [Fatal]
  - Radiotherapy [Unknown]
  - Physiotherapy [Unknown]

NARRATIVE: CASE EVENT DATE: 20181217
